FAERS Safety Report 19767958 (Version 4)
Quarter: 2021Q3

REPORT INFORMATION
  Report Type: Other
  Country: US (occurrence: US)
  Receive Date: 20210831
  Receipt Date: 20210920
  Transmission Date: 20211014
  Serious: Yes (Death)
  Sender: FDA-Public Use
  Company Number: US-ROCHE-2899389

PATIENT
  Sex: Female
  Weight: 50.8 kg

DRUGS (2)
  1. ZELBORAF [Suspect]
     Active Substance: VEMURAFENIB
     Indication: THYROID CANCER
     Dosage: 2 TABLET TWICE A DAY
     Route: 048
  2. VENCLEXTA [Suspect]
     Active Substance: VENETOCLAX
     Indication: ACUTE LEUKAEMIA
     Dosage: TAKE 4 TABLETS BY MOUTH ONCE DAILY
     Route: 048

REACTIONS (2)
  - Off label use [Unknown]
  - Death [Fatal]
